FAERS Safety Report 23186838 (Version 1)
Quarter: 2023Q4

REPORT INFORMATION
  Report Type: Spontaneous
  Country: US (occurrence: US)
  Receive Date: 20231115
  Receipt Date: 20231115
  Transmission Date: 20240110
  Serious: Yes (Other)
  Sender: FDA-Public Use
  Company Number: US-ENDO-CASE-0042044

PATIENT
  Sex: Male

DRUGS (13)
  1. OPANA ER [Suspect]
     Active Substance: OXYMORPHONE HYDROCHLORIDE
  2. ENDOCET [Suspect]
     Active Substance: ACETAMINOPHEN\OXYCODONE HYDROCHLORIDE
  3. PERCOCET [Suspect]
     Active Substance: ACETAMINOPHEN\OXYCODONE HYDROCHLORIDE
  4. ACETAMINOPHEN\HYDROCODONE BITARTRATE [Suspect]
     Active Substance: ACETAMINOPHEN\HYDROCODONE BITARTRATE
  5. TRAMADOL HYDROCHLORIDE [Suspect]
     Active Substance: TRAMADOL HYDROCHLORIDE
  6. ACETAMINOPHEN\OXYCODONE HYDROCHLORIDE [Suspect]
     Active Substance: ACETAMINOPHEN\OXYCODONE HYDROCHLORIDE
  7. BUTALBITAL, ACETAMINOPHEN AND CAFFEINE WITH CODEINE PHOSPHATE [Suspect]
     Active Substance: ACETAMINOPHEN\BUTALBITAL\CAFFEINE\CODEINE PHOSPHATE
  8. MORPHINE SULFATE [Suspect]
     Active Substance: MORPHINE SULFATE
  9. OXYMORPHONE HYDROCHLORIDE [Suspect]
     Active Substance: OXYMORPHONE HYDROCHLORIDE
  10. HYDROCODONE POLISTIREX AND CHLORPHENIRAMINE POLISTIREX [Suspect]
     Active Substance: CHLORPHENIRAMINE MALEATE\HYDROCODONE BITARTRATE
  11. ACETAMINOPHEN AND CODEINE [Suspect]
     Active Substance: ACETAMINOPHEN\CODEINE PHOSPHATE
  12. OPANA [Suspect]
     Active Substance: OXYMORPHONE HYDROCHLORIDE
  13. IBUDONE [Suspect]
     Active Substance: HYDROCODONE BITARTRATE\IBUPROFEN

REACTIONS (2)
  - Overdose [Unknown]
  - Dependence [Unknown]
